FAERS Safety Report 8508732-0 (Version None)
Quarter: 2012Q3

REPORT INFORMATION
  Report Type: 
  Country: None (occurrence: None)
  Receive Date: 20120713
  Receipt Date: 20120621
  Transmission Date: 20120928
  Serious: No
  Sender: FDA-Public Use
  Company Number: US-ASTRAZENECA-2012SE15836

PATIENT
  Age: 68 Year
  Sex: Male

DRUGS (1)
  1. SYMBICORT [Suspect]
     Route: 055

REACTIONS (4)
  - LUNG DISORDER [None]
  - NEUROPATHY PERIPHERAL [None]
  - SEASONAL ALLERGY [None]
  - INTENTIONAL DRUG MISUSE [None]
